FAERS Safety Report 15096990 (Version 3)
Quarter: 2018Q3

REPORT INFORMATION
  Report Type: Spontaneous
  Country: ES (occurrence: ES)
  Receive Date: 20180702
  Receipt Date: 20180918
  Transmission Date: 20181010
  Serious: Yes (Hospitalization)
  Sender: FDA-Public Use
  Company Number: ES-TOLMAR, INC.-2018ES006678

PATIENT

DRUGS (1)
  1. ELIGARD [Suspect]
     Active Substance: LEUPROLIDE ACETATE
     Indication: PRODUCT USED FOR UNKNOWN INDICATION
     Dosage: UNK, BIANNUAL INTAKE
     Route: 065

REACTIONS (1)
  - Pathological fracture [Unknown]

NARRATIVE: CASE EVENT DATE: 201708
